FAERS Safety Report 6206773-X (Version None)
Quarter: 2009Q2

REPORT INFORMATION
  Report Type: 
  Country: None (occurrence: None)
  Receive Date: 20090528
  Receipt Date: 20090520
  Transmission Date: 20091009
  Serious: Yes (Hospitalization)
  Sender: FDA-Public Use
  Company Number: JP-ASTRAZENECA-2009SE01626

PATIENT
  Sex: Male
  Weight: 60 kg

DRUGS (10)
  1. ECARD COMBINATION TABLETS HD [Suspect]
     Indication: HYPERTENSION
     Route: 048
     Dates: start: 20090316, end: 20090430
  2. TAKEPRON OD TABLETS 15 [Concomitant]
     Route: 048
     Dates: start: 20070922
  3. ADALAT CC [Concomitant]
     Route: 048
     Dates: start: 20070922
  4. LIVALO [Concomitant]
     Route: 048
     Dates: start: 20070922
  5. ASPIRIN [Concomitant]
     Route: 048
     Dates: start: 20070922
  6. WARFARIN [Concomitant]
     Route: 048
     Dates: start: 20070922
  7. PLETAL [Concomitant]
     Route: 048
     Dates: start: 20070922
  8. NEOPHAGEN C [Concomitant]
     Route: 048
     Dates: start: 20070922
  9. AZELASTINE HCL [Concomitant]
     Route: 048
     Dates: start: 20070922
  10. HUMULIN 3/7 [Concomitant]
     Route: 058
     Dates: start: 20070922

REACTIONS (2)
  - BLOOD PRESSURE INADEQUATELY CONTROLLED [None]
  - DIABETES MELLITUS INADEQUATE CONTROL [None]
